FAERS Safety Report 8180413-5 (Version None)
Quarter: 2012Q1

REPORT INFORMATION
  Report Type: 
  Country: None (occurrence: None)
  Receive Date: 20120229
  Receipt Date: 20120216
  Transmission Date: 20120608
  Serious: Yes (Hospitalization)
  Sender: FDA-Public Use
  Company Number: 2012SP006167

PATIENT
  Age: 17 Year
  Sex: Male
  Weight: 60 kg

DRUGS (5)
  1. ASENAPINE (ASENAPINE /05706901/) [Suspect]
     Indication: SCHIZOPHRENIA
     Dosage: 2.5 MG;BID;SL
     Route: 060
     Dates: start: 20120123, end: 20120125
  2. LORAZEPAM [Concomitant]
  3. IBUPROFEN [Concomitant]
  4. SULPIRID [Concomitant]
  5. CLOZAPINE [Concomitant]

REACTIONS (15)
  - HIGH DENSITY LIPOPROTEIN DECREASED [None]
  - VERY LOW DENSITY LIPOPROTEIN DECREASED [None]
  - SCHIZOPHRENIA [None]
  - BLOOD CHOLESTEROL DECREASED [None]
  - GRANULOCYTE COUNT INCREASED [None]
  - RED BLOOD CELL COUNT INCREASED [None]
  - CONDITION AGGRAVATED [None]
  - INSOMNIA [None]
  - C-REACTIVE PROTEIN INCREASED [None]
  - MONOCYTE COUNT INCREASED [None]
  - AKATHISIA [None]
  - BLOOD CALCIUM INCREASED [None]
  - LYMPHOCYTE PERCENTAGE DECREASED [None]
  - MEAN PLATELET VOLUME DECREASED [None]
  - RED CELL DISTRIBUTION WIDTH INCREASED [None]
